FAERS Safety Report 9799883 (Version 2)
Quarter: 2014Q1

REPORT INFORMATION
  Report Type: Spontaneous
  Country: FR (occurrence: FR)
  Receive Date: 20140106
  Receipt Date: 20140116
  Transmission Date: 20141002
  Serious: Yes (Hospitalization)
  Sender: FDA-Public Use
  Company Number: FR-VIIV HEALTHCARE LIMITED-B0955732B

PATIENT
  Age: 0 Year
  Sex: Female

DRUGS (11)
  1. RETROVIR [Suspect]
     Indication: PROPHYLAXIS AGAINST HIV INFECTION
     Dosage: 4MGK PER DAY
     Route: 048
     Dates: start: 20130619, end: 20130731
  2. COMBIVIR [Suspect]
     Indication: HIV INFECTION
     Dosage: 1TAB TWICE PER DAY
     Route: 064
     Dates: start: 201210, end: 20130619
  3. KALETRA [Suspect]
     Indication: HIV INFECTION
     Dosage: 2UNIT TWICE PER DAY
     Route: 064
     Dates: start: 201210, end: 20130619
  4. ENGERIX B ADULT [Concomitant]
     Indication: PROPHYLAXIS
     Route: 042
     Dates: start: 20131019, end: 20131019
  5. INFANRIX HEXA [Concomitant]
     Indication: PROPHYLAXIS
     Route: 042
     Dates: start: 20131019, end: 20131019
  6. PREVENAR [Concomitant]
     Indication: PROPHYLAXIS
     Route: 042
     Dates: start: 20131019, end: 20131019
  7. IMMUNOGLOBULIN ANTI HEPATITIS B [Concomitant]
     Route: 065
     Dates: start: 2013
  8. UVESTEROL [Concomitant]
     Route: 065
     Dates: start: 20130619
  9. SPECIAFOLDINE [Concomitant]
     Route: 065
     Dates: start: 20130619
  10. FUMAFER [Concomitant]
     Route: 065
     Dates: start: 20130619
  11. PARACETAMOL [Concomitant]
     Route: 065
     Dates: start: 2013

REACTIONS (4)
  - Ovarian neoplasm [Not Recovered/Not Resolved]
  - Ascites [Not Recovered/Not Resolved]
  - Abdominal distension [Unknown]
  - Foetal exposure during pregnancy [Unknown]
